FAERS Safety Report 12304852 (Version 1)
Quarter: 2016Q2

REPORT INFORMATION
  Report Type: Spontaneous
  Country: US (occurrence: None)
  Receive Date: 20160425
  Receipt Date: 20160425
  Transmission Date: 20160815
  Serious: Yes (Death)
  Sender: FDA-Public Use
  Company Number: None

PATIENT
  Age: 60 Year
  Sex: Male

DRUGS (8)
  1. LANTUS SOLOSTAR [Suspect]
     Active Substance: INSULIN GLARGINE
     Indication: DIABETES MELLITUS
     Route: 058
     Dates: start: 20130514, end: 20160314
  2. FUROSEMIDE. [Concomitant]
     Active Substance: FUROSEMIDE
  3. SIMVASTATIN. [Concomitant]
     Active Substance: SIMVASTATIN
  4. ABILIFY [Concomitant]
     Active Substance: ARIPIPRAZOLE
  5. LISINOPRIL. [Concomitant]
     Active Substance: LISINOPRIL
  6. DULOXETINE. [Concomitant]
     Active Substance: DULOXETINE
  7. FELODIPINEEXTENDED-RELEASE TABLETS [Concomitant]
     Active Substance: FELODIPINE
  8. MORPHINE ER [Concomitant]
     Active Substance: MORPHINE

REACTIONS (1)
  - Road traffic accident [None]
